FAERS Safety Report 13670758 (Version 1)
Quarter: 2017Q2

REPORT INFORMATION
  Report Type: Spontaneous
  Country: US (occurrence: US)
  Receive Date: 20170620
  Receipt Date: 20170620
  Transmission Date: 20170830
  Serious: No
  Sender: FDA-Public Use
  Company Number: US-ROCHE-1203912

PATIENT
  Sex: Male

DRUGS (2)
  1. XELODA [Suspect]
     Active Substance: CAPECITABINE
     Indication: COLON CANCER
     Route: 065
  2. XELODA [Suspect]
     Active Substance: CAPECITABINE
     Route: 065

REACTIONS (3)
  - Blood creatinine increased [Unknown]
  - Diarrhoea [Unknown]
  - Blood albumin increased [Unknown]
